FAERS Safety Report 22259839 (Version 5)
Quarter: 2025Q1

REPORT INFORMATION
  Report Type: Report from Study
  Country: CA (occurrence: CA)
  Receive Date: 20230427
  Receipt Date: 20250205
  Transmission Date: 20250409
  Serious: Yes (Hospitalization, Other)
  Sender: TAKEDA
  Company Number: CA-TAKEDA-2021TUS081878

PATIENT
  Sex: Female

DRUGS (5)
  1. VEDOLIZUMAB [Suspect]
     Active Substance: VEDOLIZUMAB
     Indication: Crohn^s disease
  2. VEDOLIZUMAB [Suspect]
     Active Substance: VEDOLIZUMAB
  3. TYLENOL WITH CODEINE [Suspect]
     Active Substance: ACETAMINOPHEN\CODEINE PHOSPHATE
     Indication: Product used for unknown indication
  4. PREDNISONE [Suspect]
     Active Substance: PREDNISONE
     Indication: Product used for unknown indication
  5. MESALAMINE [Concomitant]
     Active Substance: MESALAMINE

REACTIONS (15)
  - Crohn^s disease [Unknown]
  - Oropharyngeal discomfort [Unknown]
  - Abdominal mass [Unknown]
  - Drug hypersensitivity [Unknown]
  - Fistula [Unknown]
  - Blood iron decreased [Unknown]
  - Malaise [Unknown]
  - Mouth ulceration [Unknown]
  - Eye inflammation [Unknown]
  - Blood glucose increased [Unknown]
  - Abdominal pain [Unknown]
  - Blood pressure increased [Unknown]
  - Anal fissure [Unknown]
  - Haemorrhoids [Unknown]
  - Arthralgia [Unknown]
